FAERS Safety Report 17003124 (Version 4)
Quarter: 2025Q1

REPORT INFORMATION
  Report Type: Report from Study
  Country: NL (occurrence: NL)
  Receive Date: 20191107
  Receipt Date: 20250313
  Transmission Date: 20250409
  Serious: Yes (Hospitalization)
  Sender: AUROBINDO
  Company Number: None

PATIENT
  Age: 82 Year
  Sex: Female

DRUGS (1)
  1. CINACALCET [Suspect]
     Active Substance: CINACALCET
     Indication: Hypercalcaemia
     Route: 065

REACTIONS (4)
  - Hypocalcaemia [Recovering/Resolving]
  - Unevaluable event [Unknown]
  - Hypercalcaemia [Unknown]
  - Accidental exposure to product [Unknown]
